FAERS Safety Report 9366695 (Version 1)
Quarter: 2013Q2

REPORT INFORMATION
  Report Type: Spontaneous
  Country: US (occurrence: US)
  Receive Date: 20130625
  Receipt Date: 20130625
  Transmission Date: 20140414
  Serious: Yes (Other)
  Sender: FDA-Public Use
  Company Number: US-PFIZER INC-2013185221

PATIENT
  Age: 62 Year
  Sex: Female

DRUGS (1)
  1. CELEBREX [Suspect]
     Dosage: UNK

REACTIONS (2)
  - Abasia [Unknown]
  - Muscular weakness [Unknown]
